FAERS Safety Report 17627234 (Version 1)
Quarter: 2020Q2

REPORT INFORMATION
  Report Type: Spontaneous
  Country: GB (occurrence: GB)
  Receive Date: 20200405
  Receipt Date: 20200405
  Transmission Date: 20200713
  Serious: Yes (Other)
  Sender: FDA-Public Use
  Company Number: GB-ALLERGAN-2013769US

PATIENT
  Sex: Female
  Weight: 56 kg

DRUGS (5)
  1. FLIXONASE [Concomitant]
     Active Substance: FLUTICASONE PROPIONATE
     Dosage: SACHET, IN EACH NOSTRIL, TO COMPLETE 3 MONTH^S COURSE
     Route: 065
     Dates: start: 20200204, end: 20200207
  2. DIAZEPAM. [Concomitant]
     Active Substance: DIAZEPAM
     Dosage: 1-2 BD
     Route: 065
     Dates: start: 20200217, end: 20200218
  3. CLARITHROMYCIN. [Concomitant]
     Active Substance: CLARITHROMYCIN
     Route: 065
     Dates: start: 20200120, end: 20200125
  4. CITALOPRAM HYDROBROMIDE - BP [Suspect]
     Active Substance: CITALOPRAM HYDROBROMIDE
     Indication: PRODUCT USED FOR UNKNOWN INDICATION
     Route: 065
     Dates: start: 20191210, end: 20200107
  5. DOXYCYCLINE. [Concomitant]
     Active Substance: DOXYCYCLINE
     Dosage: TAKE TWO NOW THEN ONE DAILY FOR 4 DAYS TO TREAT...
     Route: 065
     Dates: start: 20200122, end: 20200127

REACTIONS (2)
  - Abdominal discomfort [Unknown]
  - Diarrhoea [Recovered/Resolved]
